FAERS Safety Report 9804366 (Version 1)
Quarter: 2014Q1

REPORT INFORMATION
  Report Type: Spontaneous
  Country: US (occurrence: US)
  Receive Date: 20140108
  Receipt Date: 20140108
  Transmission Date: 20141002
  Serious: No
  Sender: FDA-Public Use
  Company Number: US-TEVA-454440USA

PATIENT
  Age: 39 Year
  Sex: Female
  Weight: 86.26 kg

DRUGS (3)
  1. PARAGARD 380A [Suspect]
     Indication: CONTRACEPTION
     Route: 015
     Dates: start: 20131219
  2. SYNTHROID [Concomitant]
     Indication: BASEDOW^S DISEASE
     Dates: start: 2009
  3. CYTOMEL [Concomitant]
     Indication: BASEDOW^S DISEASE
     Dates: start: 2009

REACTIONS (1)
  - Discomfort [Not Recovered/Not Resolved]
